FAERS Safety Report 23699580 (Version 1)
Quarter: 2024Q2

REPORT INFORMATION
  Report Type: Spontaneous
  Country: US (occurrence: US)
  Receive Date: 20240402
  Receipt Date: 20240402
  Transmission Date: 20240715
  Serious: No
  Sender: FDA-Public Use
  Company Number: US-002147023-NVSC2024US065219

PATIENT
  Sex: Male
  Weight: 138.5 kg

DRUGS (2)
  1. VALSARTAN [Suspect]
     Active Substance: VALSARTAN
     Indication: Product used for unknown indication
     Dosage: UNK
     Route: 065
  2. PROPRANOLOL HYDROCHLORIDE [Suspect]
     Active Substance: PROPRANOLOL HYDROCHLORIDE
     Indication: Product used for unknown indication
     Dosage: UNK
     Route: 065

REACTIONS (12)
  - Cardiomegaly [Unknown]
  - Laboratory test abnormal [Unknown]
  - Limb discomfort [Unknown]
  - Muscle atrophy [Unknown]
  - Anaemia [Unknown]
  - Fluid retention [Unknown]
  - Muscle swelling [Unknown]
  - Blood sodium decreased [Unknown]
  - Oedema [Unknown]
  - Asthenia [Unknown]
  - Myalgia [Unknown]
  - Fatigue [Unknown]
